FAERS Safety Report 11179216 (Version 1)
Quarter: 2015Q2

REPORT INFORMATION
  Report Type: Spontaneous
  Country: US (occurrence: US)
  Receive Date: 20150610
  Receipt Date: 20150610
  Transmission Date: 20150821
  Serious: Yes (Other)
  Sender: FDA-Public Use
  Company Number: US-GE HEALTHCARE MEDICAL DIAGNOSTICS-VISP-PR-1506S-0210

PATIENT
  Age: 35 Year
  Sex: Female

DRUGS (6)
  1. VISIPAQUE [Suspect]
     Active Substance: IODIXANOL
     Indication: NAUSEA
  2. VISIPAQUE [Suspect]
     Active Substance: IODIXANOL
     Indication: ABDOMINAL PAIN LOWER
  3. VISIPAQUE [Suspect]
     Active Substance: IODIXANOL
     Indication: VOMITING
  4. VISIPAQUE [Suspect]
     Active Substance: IODIXANOL
     Indication: DIAGNOSTIC PROCEDURE
  5. VISIPAQUE [Suspect]
     Active Substance: IODIXANOL
     Indication: ABDOMINAL PAIN UPPER
     Route: 042
     Dates: start: 20150529, end: 20150529
  6. VISIPAQUE [Suspect]
     Active Substance: IODIXANOL
     Indication: DIARRHOEA

REACTIONS (1)
  - Contrast media allergy [Recovered/Resolved]

NARRATIVE: CASE EVENT DATE: 20150529
